FAERS Safety Report 10531408 (Version 2)
Quarter: 2014Q4

REPORT INFORMATION
  Report Type: Spontaneous
  Country: TN (occurrence: TN)
  Receive Date: 20141021
  Receipt Date: 20141112
  Transmission Date: 20150529
  Serious: Yes (Hospitalization, Other)
  Sender: FDA-Public Use
  Company Number: TN-PFIZER INC-2014286181

PATIENT
  Age: 68 Year
  Sex: Female

DRUGS (7)
  1. VESSEL DUE F [Concomitant]
     Active Substance: SULODEXIDE
     Indication: PROTEINURIA
  2. ASPEGIC [Concomitant]
     Active Substance: ASPIRIN DL-LYSINE
     Indication: PROPHYLAXIS
  3. LYRICA [Suspect]
     Active Substance: PREGABALIN
     Indication: DIABETIC NEUROPATHY
     Dosage: 75 MG, 1X/DAY
     Route: 048
     Dates: start: 201407, end: 201407
  4. LOXEN [Concomitant]
     Active Substance: NICARDIPINE HYDROCHLORIDE
     Indication: HYPERTENSION
  5. CALPEROS [Concomitant]
     Active Substance: CALCIUM CARBONATE
     Indication: RENAL FAILURE
  6. ERYTHROPOIETIN [Concomitant]
     Active Substance: ERYTHROPOIETIN
     Indication: RENAL FAILURE
  7. LASILIX [Concomitant]
     Active Substance: FUROSEMIDE
     Indication: RENAL FAILURE

REACTIONS (4)
  - Coma [Recovered/Resolved]
  - Generalised oedema [Recovered/Resolved]
  - Nervous system disorder [Recovered/Resolved]
  - Hyponatraemia [Recovered/Resolved]

NARRATIVE: CASE EVENT DATE: 201407
